FAERS Safety Report 24249705 (Version 1)
Quarter: 2024Q3

REPORT INFORMATION
  Report Type: Spontaneous
  Country: US (occurrence: US)
  Receive Date: 20240826
  Receipt Date: 20240826
  Transmission Date: 20241017
  Serious: Yes (Hospitalization)
  Sender: GLENMARK
  Company Number: US-MLMSERVICE-20240805-PI152046-00150-1

PATIENT

DRUGS (4)
  1. FLUCONAZOLE [Suspect]
     Active Substance: FLUCONAZOLE
     Indication: Meningitis coccidioides
     Dosage: 800 MILLIGRAM, QD (12.9 MG/KG)
     Route: 048
  2. VORICONAZOLE [Suspect]
     Active Substance: VORICONAZOLE
     Indication: Meningitis coccidioides
     Dosage: 300 MILLIGRAM, BID, (4.8 MG/KG TWICE DAILY)
     Route: 042
  3. VORICONAZOLE [Suspect]
     Active Substance: VORICONAZOLE
     Dosage: 350 MILLIGRAM, BID
     Route: 042
  4. AMPHOTERICIN B [Concomitant]
     Active Substance: AMPHOTERICIN B
     Indication: Meningitis coccidioides
     Dosage: UNK (THRICE WEEKLY)
     Route: 042

REACTIONS (3)
  - Periostitis [Recovering/Resolving]
  - Cheilitis [Unknown]
  - Alopecia [Unknown]
